FAERS Safety Report 25525453 (Version 1)
Quarter: 2025Q3

REPORT INFORMATION
  Report Type: Spontaneous
  Country: US (occurrence: US)
  Receive Date: 20250707
  Receipt Date: 20250707
  Transmission Date: 20251020
  Serious: No
  Sender: LUPIN
  Company Number: US-LUPIN PHARMACEUTICALS INC.-2025-05697

PATIENT
  Age: 39 Year

DRUGS (2)
  1. TOLVAPTAN [Suspect]
     Active Substance: TOLVAPTAN
     Indication: Congenital cystic kidney disease
     Dosage: 90-30 BID, UPON WAKING, AND THEN 8 HOURS LATER
  2. TOLVAPTAN [Suspect]
     Active Substance: TOLVAPTAN
     Indication: Congenital cystic kidney disease
     Dosage: 90-30 BID, UPON WAKING, AND THEN 8 HOURS LATER

REACTIONS (2)
  - Back pain [Recovered/Resolved]
  - Product dose omission issue [Unknown]
